APPROVED DRUG PRODUCT: PREGABALIN
Active Ingredient: PREGABALIN
Strength: 225MG
Dosage Form/Route: CAPSULE;ORAL
Application: A209883 | Product #007
Applicant: STRIDES PHARMA GLOBAL PTE LTD
Approved: Jan 24, 2024 | RLD: No | RS: No | Type: DISCN